FAERS Safety Report 4674691-4 (Version None)
Quarter: 2005Q2

REPORT INFORMATION
  Report Type: 
  Country: None (occurrence: None)
  Receive Date: 20050526
  Receipt Date: 20041110
  Transmission Date: 20051028
  Serious: Yes (Other)
  Sender: FDA-Public Use
  Company Number: US-BRISTOL-MYERS SQUIBB COMPANY-12762472

PATIENT
  Age: 59 Year
  Sex: Female
  Weight: 73 kg

DRUGS (6)
  1. ESTRACE [Suspect]
     Indication: HORMONE REPLACEMENT THERAPY
     Dosage: CYCLE DAYS 1-25
     Dates: start: 19941213
  2. ESTRADIOL [Suspect]
     Indication: HORMONE REPLACEMENT THERAPY
  3. PREMPRO (PREMARIN;CYCRIN 14/14) [Suspect]
     Indication: HORMONE REPLACEMENT THERAPY
     Dosage: DOSAGE 0.625/2.5
     Dates: start: 19990612
  4. PROVERA [Suspect]
     Indication: HORMONE REPLACEMENT THERAPY
     Dosage: CYCLE DAYS 16-25
     Dates: start: 19941213
  5. MEDROXYPROGESTERONE [Suspect]
     Indication: HORMONE REPLACEMENT THERAPY
  6. DIOVAN [Concomitant]
     Indication: HYPERTENSION

REACTIONS (7)
  - ANURIA [None]
  - BREAST CANCER [None]
  - BREAST CANCER FEMALE [None]
  - HYPOAESTHESIA [None]
  - METASTASES TO BONE [None]
  - METASTASES TO LYMPH NODES [None]
  - METASTASES TO MENINGES [None]
